FAERS Safety Report 6287027-2 (Version None)
Quarter: 2009Q3

REPORT INFORMATION
  Report Type: 
  Country: None (occurrence: None)
  Receive Date: 20090727
  Receipt Date: 20090727
  Transmission Date: 20100115
  Serious: Yes (Other)
  Sender: FDA-Public Use
  Company Number: None

PATIENT
  Sex: Female
  Weight: 91.6266 kg

DRUGS (1)
  1. ZOLPIDEM [Suspect]
     Indication: INSOMNIA
     Dosage: 1 TAB AS NEEDED FOR SLEEP 2-3 TIMES A WEEK FOR APPROX 6 WEEKS

REACTIONS (4)
  - ARTHRALGIA [None]
  - CONTUSION [None]
  - FALL [None]
  - SOMNAMBULISM [None]
